FAERS Safety Report 25928267 (Version 2)
Quarter: 2025Q4

REPORT INFORMATION
  Report Type: Report from Study
  Country: US (occurrence: US)
  Receive Date: 20251016
  Receipt Date: 20251111
  Transmission Date: 20260118
  Serious: No
  Sender: ACADIA PHARMACEUTICALS
  Company Number: US-ACADIA PHARMACEUTICALS INC.-ACA-2025-PIM-011183

PATIENT
  Age: 77 Year
  Sex: Male

DRUGS (12)
  1. NUPLAZID [Suspect]
     Active Substance: PIMAVANSERIN TARTRATE
     Indication: Parkinson^s disease psychosis
     Dosage: 34 MILLIGRAM, QD
     Route: 048
     Dates: start: 20251007
  2. FLOMAX [Concomitant]
     Active Substance: TAMSULOSIN HYDROCHLORIDE
     Dosage: 2 MILLIGRAM, QD
  3. SYNTHROID [Concomitant]
     Active Substance: LEVOTHYROXINE SODIUM
     Dosage: 175 MICROGRAM, QD
  4. LOSARTAN [Concomitant]
     Active Substance: LOSARTAN
     Dosage: 0.5 DOSAGE FORM, QD
  5. NEURONTIN [Concomitant]
     Active Substance: GABAPENTIN
     Dosage: 100 MILLIGRAM, TID
  6. CARBIDOPA\LEVODOPA [Concomitant]
     Active Substance: CARBIDOPA\LEVODOPA
     Dosage: TID
  7. OMEPRAZOLE [Concomitant]
     Active Substance: OMEPRAZOLE
     Dosage: 20 MILLIGRAM, BID
  8. LACTULOSE [Concomitant]
     Active Substance: LACTULOSE
     Dosage: 30 MILLILITER, BID (10 GRAM/15 ML)
  9. DICLOFENAC [Concomitant]
     Active Substance: DICLOFENAC
     Dosage: 1 DOSAGE FORM, BID
  10. FINASTERIDE [Concomitant]
     Active Substance: FINASTERIDE
     Dosage: 1 DOSAGE FORM, QD
  11. COUMADIN [Concomitant]
     Active Substance: WARFARIN SODIUM
     Dosage: DAILY
  12. LASIX [Concomitant]
     Active Substance: FUROSEMIDE
     Dosage: 2 DOSAGE FORM, QD

REACTIONS (4)
  - Sedation [Unknown]
  - Somnolence [Unknown]
  - Confusional state [Unknown]
  - Peripheral swelling [Unknown]

NARRATIVE: CASE EVENT DATE: 20251008
